FAERS Safety Report 11984124 (Version 1)
Quarter: 2016Q1

REPORT INFORMATION
  Report Type: Spontaneous
  Country: BR (occurrence: BR)
  Receive Date: 20160201
  Receipt Date: 20160201
  Transmission Date: 20160526
  Serious: Yes (Hospitalization)
  Sender: FDA-Public Use
  Company Number: BR-SA-2016SA015636

PATIENT
  Sex: Male

DRUGS (1)
  1. LANTUS SOLOSTAR [Suspect]
     Active Substance: INSULIN GLARGINE
     Dosage: AT NIGHT
     Route: 065
     Dates: start: 201512

REACTIONS (4)
  - Malaise [Unknown]
  - Blood glucose increased [Unknown]
  - Acute kidney injury [Unknown]
  - Hypertension [Unknown]
